FAERS Safety Report 17419417 (Version 1)
Quarter: 2020Q1

REPORT INFORMATION
  Report Type: Spontaneous
  Country: IN (occurrence: IN)
  Receive Date: 20200214
  Receipt Date: 20200214
  Transmission Date: 20200409
  Serious: Yes (Other)
  Sender: FDA-Public Use
  Company Number: IN-JNJFOC-20200210530

PATIENT

DRUGS (5)
  1. SULPHASALAZINE [Suspect]
     Active Substance: SULFASALAZINE
     Indication: ARTHRITIS
     Dosage: 1 GRAM, ONCE DAILY (QD)
     Route: 064
  2. PREDNISOLONE. [Suspect]
     Active Substance: PREDNISOLONE
     Indication: HYPERSENSITIVITY
     Dosage: 5 MILLIGRAM, ONCE DAILY (QD)
     Route: 064
  3. HYDROXYCHLOROQUINE [Suspect]
     Active Substance: HYDROXYCHLOROQUINE
     Indication: MALARIA
     Dosage: 200 MILLIGRAM, ONCE DAILY (QD)
     Route: 064
  4. NAPROXEN. [Suspect]
     Active Substance: NAPROXEN
     Indication: PRODUCT USED FOR UNKNOWN INDICATION
     Dosage: 500 MG SOS
     Route: 064
  5. CETIRIZINE HYDROCHLORIDE. [Suspect]
     Active Substance: CETIRIZINE HYDROCHLORIDE
     Indication: PRURITUS
     Dosage: 10 MILLIGRAM, 2X/DAY (BID)
     Route: 064

REACTIONS (5)
  - Pulmonary arterial hypertension [Unknown]
  - Meconium aspiration syndrome [Unknown]
  - Respiratory distress [Unknown]
  - Pneumonia aspiration [Unknown]
  - Maternal exposure during pregnancy [Unknown]
